FAERS Safety Report 4994758-0 (Version None)
Quarter: 2006Q1

REPORT INFORMATION
  Report Type: 
  Country: None (occurrence: None)
  Receive Date: 20060313
  Receipt Date: 20050512
  Transmission Date: 20060701
  Serious: Yes (Hospitalization)
  Sender: FDA-Public Use
  Company Number: PHEH2005US05440

PATIENT
  Age: 72 Year
  Sex: Female

DRUGS (11)
  1. TRILEPTAL [Suspect]
  2. RISPERIDONE [Concomitant]
  3. METOPROLOL SUCCINATE [Concomitant]
  4. ARICEPT [Concomitant]
  5. PEPCID [Concomitant]
  6. GLIPIZIDE [Concomitant]
  7. PREDNISONE TAB [Concomitant]
  8. COMBIVENT (IPRATROPIUM BROMIDE, SALBUTAMOL) [Concomitant]
  9. HYDRALAZINE HCL [Concomitant]
  10. LEXAPRO [Concomitant]
  11. REGLAN /USA/ (METOCLOPRAMIDE HYDROCHLORIDE) [Concomitant]

REACTIONS (1)
  - HYPONATRAEMIA [None]
